FAERS Safety Report 25247811 (Version 1)
Quarter: 2025Q2

REPORT INFORMATION
  Report Type: Spontaneous
  Country: FR (occurrence: FR)
  Receive Date: 20250428
  Receipt Date: 20250428
  Transmission Date: 20250717
  Serious: Yes (Life-Threatening, Hospitalization, Other)
  Sender: BRISTOL-MYERS SQUIBB COMPANY
  Company Number: None

PATIENT
  Age: 53 Year
  Sex: Male

DRUGS (2)
  1. ELIQUIS [Suspect]
     Active Substance: APIXABAN
     Indication: Arterial disorder
     Dosage: 10 MG X2
     Dates: start: 20241220, end: 20241227
  2. ELIQUIS [Suspect]
     Active Substance: APIXABAN
     Dosage: 5 MG X2
     Dates: start: 20241228, end: 20241230

REACTIONS (4)
  - Skin necrosis [Not Recovered/Not Resolved]
  - Splenic infarction [Not Recovered/Not Resolved]
  - Cerebral haemorrhage [Not Recovered/Not Resolved]
  - Off label use [Unknown]

NARRATIVE: CASE EVENT DATE: 20241230
